FAERS Safety Report 5405103-0 (Version None)
Quarter: 2007Q3

REPORT INFORMATION
  Report Type: 
  Country: None (occurrence: None)
  Receive Date: 20070803
  Receipt Date: 20070726
  Transmission Date: 20080115
  Serious: Yes (Other)
  Sender: FDA-Public Use
  Company Number: BR-ROCHE-509227

PATIENT
  Age: 23 Year
  Sex: Female

DRUGS (2)
  1. CLONAZEPAM [Suspect]
     Indication: DEPRESSION
     Dosage: PATIENT RECEIVED 30 TABLETS.
     Route: 048
     Dates: start: 20070726, end: 20070726
  2. CLONAZEPAM [Suspect]
     Route: 048
     Dates: start: 20060101, end: 20070725

REACTIONS (3)
  - MOVEMENT DISORDER [None]
  - OVERDOSE [None]
  - SEDATION [None]
